FAERS Safety Report 13824110 (Version 1)
Quarter: 2017Q3

REPORT INFORMATION
  Report Type: Spontaneous
  Country: US (occurrence: US)
  Receive Date: 20170801
  Receipt Date: 20170801
  Transmission Date: 20171127
  Serious: Yes (Other)
  Sender: FDA-Public Use
  Company Number: None

PATIENT
  Age: 27 Year
  Sex: Male
  Weight: 85.87 kg

DRUGS (2)
  1. SERTRALINE [Suspect]
     Active Substance: SERTRALINE HYDROCHLORIDE
     Indication: AFFECTIVE DISORDER
     Route: 048
     Dates: start: 20170131
  2. CYCLOBENZAPRINE. [Suspect]
     Active Substance: CYCLOBENZAPRINE
     Indication: HYPOTONIA
     Route: 048
     Dates: start: 20170131, end: 20170731

REACTIONS (3)
  - Incorrect dose administered [None]
  - Seizure [None]
  - Serotonin syndrome [None]

NARRATIVE: CASE EVENT DATE: 20170731
